FAERS Safety Report 22144177 (Version 2)
Quarter: 2023Q1

REPORT INFORMATION
  Report Type: Spontaneous
  Country: US (occurrence: US)
  Receive Date: 20230327
  Receipt Date: 20230331
  Transmission Date: 20230418
  Serious: No
  Sender: FDA-Public Use
  Company Number: US-AMGEN-USASP2023048326

PATIENT
  Age: 67 Year
  Sex: Male
  Weight: 102.95 kg

DRUGS (1)
  1. NEULASTA [Suspect]
     Active Substance: PEGFILGRASTIM
     Indication: Lung neoplasm malignant
     Dosage: UNK
     Route: 065

REACTIONS (3)
  - Unintentional medical device removal [Unknown]
  - Accidental exposure to product [Unknown]
  - Device use error [Unknown]

NARRATIVE: CASE EVENT DATE: 20230317
